FAERS Safety Report 14128679 (Version 1)
Quarter: 2017Q4

REPORT INFORMATION
  Report Type: Spontaneous
  Country: US (occurrence: US)
  Receive Date: 20171026
  Receipt Date: 20171026
  Transmission Date: 20180321
  Serious: Yes (Disabling, Other)
  Sender: FDA-Public Use
  Company Number: None

PATIENT
  Sex: Male
  Weight: 128.25 kg

DRUGS (5)
  1. OTEZLA [Suspect]
     Active Substance: APREMILAST
     Indication: PSORIASIS
     Dosage: ?          QUANTITY:1 TABLET(S);OTHER FREQUENCY:2 TIMES A DAY;?
     Route: 048
     Dates: start: 20161031, end: 20170930
  2. NOPNE [Concomitant]
  3. CIALIS [Concomitant]
     Active Substance: TADALAFIL
  4. FUROSEMIDE. [Concomitant]
     Active Substance: FUROSEMIDE
  5. OMEPRAZOLE. [Concomitant]
     Active Substance: OMEPRAZOLE

REACTIONS (6)
  - Weight decreased [None]
  - Product quality issue [None]
  - Peripheral swelling [None]
  - Fluid retention [None]
  - Psoriasis [None]
  - Chest pain [None]

NARRATIVE: CASE EVENT DATE: 20170820
